FAERS Safety Report 16230943 (Version 3)
Quarter: 2019Q2

REPORT INFORMATION
  Report Type: Spontaneous
  Country: US (occurrence: US)
  Receive Date: 20190423
  Receipt Date: 20190430
  Transmission Date: 20190711
  Serious: Yes (Other)
  Sender: FDA-Public Use
  Company Number: US-AMGEN-USASP2019062579

PATIENT
  Age: 47 Year
  Sex: Male
  Weight: 79.64 kg

DRUGS (4)
  1. NEULASTA [Suspect]
     Active Substance: PEGFILGRASTIM
     Indication: AGRANULOCYTOSIS
  2. CISPLATIN. [Suspect]
     Active Substance: CISPLATIN
     Indication: LUNG NEOPLASM MALIGNANT
     Dosage: 160 MILLIGRAM, Q3WK
     Route: 065
     Dates: start: 20190408
  3. NEULASTA [Suspect]
     Active Substance: PEGFILGRASTIM
     Indication: LUNG NEOPLASM MALIGNANT
     Dosage: 6 MILLIGRAM, Q3WK
     Route: 058
  4. ETOPOSIDE. [Suspect]
     Active Substance: ETOPOSIDE
     Indication: LUNG NEOPLASM MALIGNANT
     Dosage: 200 MILLIGRAM, Q3WK
     Route: 065
     Dates: start: 20190408

REACTIONS (7)
  - Productive cough [Unknown]
  - Incorrect dose administered by device [Unknown]
  - Neutrophil count decreased [Recovered/Resolved]
  - Chills [Unknown]
  - Device issue [Unknown]
  - Nasal congestion [Unknown]
  - White blood cell count decreased [Recovered/Resolved]

NARRATIVE: CASE EVENT DATE: 20190410
